FAERS Safety Report 5470494-1 (Version None)
Quarter: 2007Q3

REPORT INFORMATION
  Report Type: 
  Country: None (occurrence: None)
  Receive Date: 20070820
  Receipt Date: 20070614
  Transmission Date: 20080115
  Serious: No
  Sender: FDA-Public Use
  Company Number: WAES 0706USA02602

PATIENT
  Age: 79 Year
  Sex: Female
  Weight: 67.1324 kg

DRUGS (7)
  1. JANUVIA [Suspect]
     Indication: DIABETES MELLITUS
     Dosage: 100 MG/DAILY/PO
     Route: 048
     Dates: start: 20070601, end: 20070601
  2. ACIPHEX [Concomitant]
  3. CYMBALTA [Concomitant]
  4. DIOVAN [Concomitant]
  5. LIPITOR [Concomitant]
  6. HYDROCHLOROTHIAZIDE [Concomitant]
  7. MTFORMIN [Concomitant]

REACTIONS (3)
  - NAUSEA [None]
  - PRESYNCOPE [None]
  - VOMITING [None]
